FAERS Safety Report 6107574-3 (Version None)
Quarter: 2009Q1

REPORT INFORMATION
  Report Type: 
  Country: None (occurrence: None)
  Receive Date: 20090309
  Receipt Date: 20090303
  Transmission Date: 20090719
  Serious: Yes (Death)
  Sender: FDA-Public Use
  Company Number: PHEH2009US01778

PATIENT
  Sex: Male

DRUGS (6)
  1. ZOMETA [Suspect]
     Indication: METASTASES TO BONE
     Dosage: 4 MG, QMO
     Dates: start: 20080103, end: 20081008
  2. ZOMETA [Suspect]
     Indication: HEAD AND NECK CANCER
  3. CARBOPLATIN [Concomitant]
     Dosage: 315 MG, UNK
     Dates: start: 20071004, end: 20080228
  4. DOCETAXEL [Concomitant]
     Dosage: 63 MG, UNK
     Dates: start: 20071004, end: 20080228
  5. XELODA [Concomitant]
     Dosage: 1800 MG, BID
     Dates: end: 20081029
  6. PACLITAXEL [Concomitant]
     Dosage: 63 MG, ONCE/SINGLE
     Dates: start: 20071227, end: 20071227

REACTIONS (28)
  - BLOOD ALBUMIN DECREASED [None]
  - BLOOD ALKALINE PHOSPHATASE INCREASED [None]
  - BLOOD CREATININE DECREASED [None]
  - BLOOD GLUCOSE INCREASED [None]
  - BLOOD UREA DECREASED [None]
  - BREATH SOUNDS ABNORMAL [None]
  - CARDIOMEGALY [None]
  - DYSPNOEA [None]
  - HAEMATOCRIT DECREASED [None]
  - HAEMOGLOBIN DECREASED [None]
  - HEAD AND NECK CANCER [None]
  - HOSPICE CARE [None]
  - LUNG CONSOLIDATION [None]
  - LYMPHADENOPATHY [None]
  - LYMPHOCYTE COUNT DECREASED [None]
  - MALIGNANT NEOPLASM PROGRESSION [None]
  - METASTASES TO BONE [None]
  - METASTASES TO PLEURA [None]
  - METASTASES TO SPINE [None]
  - MOBILITY DECREASED [None]
  - NEUTROPHIL COUNT INCREASED [None]
  - OXYGEN SATURATION DECREASED [None]
  - PERICARDIAL EFFUSION MALIGNANT [None]
  - PLEURAL EFFUSION [None]
  - POSITRON EMISSION TOMOGRAM ABNORMAL [None]
  - PROTEIN TOTAL DECREASED [None]
  - RED BLOOD CELL COUNT DECREASED [None]
  - WHITE BLOOD CELL COUNT INCREASED [None]
